FAERS Safety Report 11283483 (Version 3)
Quarter: 2018Q1

REPORT INFORMATION
  Report Type: Spontaneous
  Country: US (occurrence: US)
  Receive Date: 20150720
  Receipt Date: 20180316
  Transmission Date: 20180508
  Serious: Yes (Hospitalization, Other)
  Sender: FDA-Public Use
  Company Number: US-ELI_LILLY_AND_COMPANY-US201507002507

PATIENT
  Age: 51 Year
  Sex: Male
  Weight: 120.18 kg

DRUGS (8)
  1. AXIRON [Suspect]
     Active Substance: TESTOSTERONE
     Dosage: 30 MG, QD
     Route: 065
     Dates: start: 20140424, end: 201411
  2. COUMADIN [Concomitant]
     Active Substance: WARFARIN SODIUM
     Indication: ANTICOAGULANT THERAPY
  3. SIMVASTATIN. [Concomitant]
     Active Substance: SIMVASTATIN
     Indication: BLOOD CHOLESTEROL INCREASED
     Dosage: UNK UNK, UNKNOWN
     Route: 065
     Dates: start: 2011
  4. TESTIM [Suspect]
     Active Substance: TESTOSTERONE
     Indication: BLOOD TESTOSTERONE DECREASED
     Dosage: 5 G, QD
     Route: 065
     Dates: start: 20070917, end: 201301
  5. AXIRON [Suspect]
     Active Substance: TESTOSTERONE
     Indication: BLOOD TESTOSTERONE DECREASED
     Dosage: 30 MG, QD
     Route: 065
     Dates: start: 20130117, end: 20140210
  6. COUMADIN [Concomitant]
     Active Substance: WARFARIN SODIUM
     Indication: ANTICOAGULANT THERAPY
     Dosage: UNK, UNKNOWN
     Route: 065
     Dates: start: 2008, end: 2013
  7. LOTREL [Concomitant]
     Active Substance: AMLODIPINE BESYLATE\BENAZEPRIL HYDROCHLORIDE
     Indication: HYPERTENSION
     Dosage: UNK, UNKNOWN
     Route: 065
     Dates: start: 2008
  8. PRILOSEC [Concomitant]
     Active Substance: OMEPRAZOLE MAGNESIUM
     Indication: GASTRIC PH DECREASED
     Dosage: UNK, UNKNOWN
     Route: 065
     Dates: start: 2010

REACTIONS (8)
  - Deep vein thrombosis [Not Recovered/Not Resolved]
  - Deep vein thrombosis [Not Recovered/Not Resolved]
  - Pulmonary embolism [Unknown]
  - Muscle spasms [Unknown]
  - Weight increased [Unknown]
  - Mobility decreased [Unknown]
  - Deep vein thrombosis [Unknown]
  - Sexual dysfunction [Unknown]

NARRATIVE: CASE EVENT DATE: 20130711
